FAERS Safety Report 18565220 (Version 1)
Quarter: 2020Q4

REPORT INFORMATION
  Report Type: Spontaneous
  Country: US (occurrence: US)
  Receive Date: 20201201
  Receipt Date: 20201201
  Transmission Date: 20210114
  Serious: Yes (Hospitalization)
  Sender: FDA-Public Use
  Company Number: NVSC2020US314728

PATIENT
  Sex: Female

DRUGS (4)
  1. VIVELLE-DOT [Suspect]
     Active Substance: ESTRADIOL
     Indication: PRODUCT USED FOR UNKNOWN INDICATION
     Dosage: 0.11 MG
     Route: 062
  2. VIVELLE-DOT [Suspect]
     Active Substance: ESTRADIOL
     Dosage: 0.075 MG
     Route: 062
  3. VIVELLE-DOT [Suspect]
     Active Substance: ESTRADIOL
     Dosage: 2 DF, PATCH (CONC: 0.1 MG)
     Route: 062
  4. VIVELLE-DOT [Suspect]
     Active Substance: ESTRADIOL
     Dosage: 1 DF, PATCH
     Route: 062

REACTIONS (3)
  - Hypoaesthesia [Unknown]
  - Headache [Unknown]
  - Cyst [Unknown]
